FAERS Safety Report 24397767 (Version 1)
Quarter: 2024Q4

REPORT INFORMATION
  Report Type: Spontaneous
  Country: ES (occurrence: ES)
  Receive Date: 20241004
  Receipt Date: 20241004
  Transmission Date: 20250114
  Serious: Yes (Other)
  Sender: FRESENIUS KABI
  Company Number: None

PATIENT
  Age: 87 Year
  Sex: Male

DRUGS (1)
  1. FUROSEMIDE [Suspect]
     Active Substance: FUROSEMIDE
     Indication: Cardiac failure
     Dosage: 1 GRAM IN 12 HOURS?ROUTE: INTRAVENOUS
     Dates: start: 20240823

REACTIONS (4)
  - Depressed level of consciousness [Unknown]
  - Hypotension [Unknown]
  - Electrolyte imbalance [Unknown]
  - Product preparation error [Unknown]

NARRATIVE: CASE EVENT DATE: 20240823
